FAERS Safety Report 25382866 (Version 2)
Quarter: 2025Q2

REPORT INFORMATION
  Report Type: Spontaneous
  Country: US (occurrence: US)
  Receive Date: 20250602
  Receipt Date: 20250605
  Transmission Date: 20250716
  Serious: Yes (Other)
  Sender: NOVO NORDISK
  Company Number: US-NOVOPROD-1428749

PATIENT
  Age: 71 Year
  Sex: Male

DRUGS (12)
  1. RYBELSUS [Suspect]
     Active Substance: SEMAGLUTIDE
  2. RYBELSUS [Suspect]
     Active Substance: SEMAGLUTIDE
     Indication: Type 2 diabetes mellitus
     Route: 048
     Dates: start: 202501
  3. TRULICITY [Suspect]
     Active Substance: DULAGLUTIDE
     Indication: Product used for unknown indication
  4. RYBELSUS [Suspect]
     Active Substance: SEMAGLUTIDE
     Indication: Type 2 diabetes mellitus
  5. DOXAZOSIN [Suspect]
     Active Substance: DOXAZOSIN MESYLATE
     Indication: Erectile dysfunction
  6. DOXAZOSIN [Suspect]
     Active Substance: DOXAZOSIN MESYLATE
     Indication: Pollakiuria
  7. PRAZOSIN [Suspect]
     Active Substance: PRAZOSIN
     Indication: Pollakiuria
  8. PRAZOSIN [Suspect]
     Active Substance: PRAZOSIN
     Indication: Erectile dysfunction
  9. TAMSULOSIN [Suspect]
     Active Substance: TAMSULOSIN
     Indication: Pollakiuria
  10. TAMSULOSIN [Suspect]
     Active Substance: TAMSULOSIN
     Indication: Erectile dysfunction
  11. DUTASTERIDE [Suspect]
     Active Substance: DUTASTERIDE
     Indication: Pollakiuria
  12. DUTASTERIDE [Suspect]
     Active Substance: DUTASTERIDE
     Indication: Erectile dysfunction

REACTIONS (7)
  - Benign prostatic hyperplasia [Unknown]
  - Constipation [Recovered/Resolved]
  - Nausea [Recovered/Resolved]
  - Vomiting [Recovered/Resolved]
  - Dizziness [Unknown]
  - Off label use [Unknown]
  - Drug titration error [Unknown]

NARRATIVE: CASE EVENT DATE: 20250101
